FAERS Safety Report 16332514 (Version 2)
Quarter: 2019Q3

REPORT INFORMATION
  Report Type: Spontaneous
  Country: US (occurrence: US)
  Receive Date: 20190520
  Receipt Date: 20190802
  Transmission Date: 20191004
  Serious: No
  Sender: FDA-Public Use
  Company Number: US-PFIZER INC-2019210947

PATIENT
  Age: 83 Year
  Sex: Female

DRUGS (1)
  1. XALKORI [Suspect]
     Active Substance: CRIZOTINIB
     Indication: LUNG NEOPLASM MALIGNANT
     Dosage: 250 MG, UNK

REACTIONS (3)
  - Gastrointestinal motility disorder [Not Recovered/Not Resolved]
  - Neoplasm progression [Unknown]
  - Oedema peripheral [Not Recovered/Not Resolved]
